FAERS Safety Report 23099474 (Version 1)
Quarter: 2023Q4

REPORT INFORMATION
  Report Type: Spontaneous
  Country: NL (occurrence: NL)
  Receive Date: 20231024
  Receipt Date: 20231024
  Transmission Date: 20240110
  Serious: Yes (Life-Threatening, Hospitalization)
  Sender: FDA-Public Use
  Company Number: None

PATIENT
  Age: 51 Year
  Sex: Male
  Weight: 80 kg

DRUGS (3)
  1. OLANZAPINE PAMOATE [Suspect]
     Active Substance: OLANZAPINE PAMOATE
     Indication: Schizophrenia
     Dosage: OTHER (ONCE IN FOUR WEEK),LONG ACTING INTRAMUSCULAR (LAIM) INJECTION
     Route: 030
     Dates: start: 20230925, end: 20231006
  2. OLANZAPINE PAMOATE [Suspect]
     Active Substance: OLANZAPINE PAMOATE
     Indication: Schizophrenia
  3. LETROZOLE [Concomitant]
     Active Substance: LETROZOLE

REACTIONS (3)
  - Toxicity to various agents [Recovering/Resolving]
  - Post procedural complication [Recovering/Resolving]
  - Incorrect route of product administration [Recovering/Resolving]
